FAERS Safety Report 5483350-X (Version None)
Quarter: 2007Q4

REPORT INFORMATION
  Report Type: 
  Country: None (occurrence: None)
  Receive Date: 20071009
  Receipt Date: 20071009
  Transmission Date: 20080405
  Serious: Yes (Hospitalization)
  Sender: FDA-Public Use
  Company Number: None

PATIENT
  Sex: Male
  Weight: 62 kg

DRUGS (24)
  1. CETUXIMAB [Suspect]
     Indication: NEOPLASM MALIGNANT
     Dosage: 250MG/M2
     Dates: start: 20070611
  2. CETUXIMAB [Suspect]
     Indication: NEOPLASM MALIGNANT
     Dosage: 250MG/M2
     Dates: start: 20070618
  3. CETUXIMAB [Suspect]
     Indication: NEOPLASM MALIGNANT
     Dosage: 250MG/M2
     Dates: start: 20070625
  4. CETUXIMAB [Suspect]
     Indication: NEOPLASM MALIGNANT
     Dosage: 250MG/M2
     Dates: start: 20070702
  5. CETUXIMAB [Suspect]
     Indication: NEOPLASM MALIGNANT
     Dosage: 250MG/M2
     Dates: start: 20070709
  6. CETUXIMAB [Suspect]
     Indication: NEOPLASM MALIGNANT
     Dosage: 250MG/M2
     Dates: start: 20070716
  7. CETUXIMAB [Suspect]
     Indication: NEOPLASM MALIGNANT
     Dosage: 250MG/M2
     Dates: start: 20070723
  8. CETUXIMAB [Suspect]
     Indication: NEOPLASM MALIGNANT
     Dosage: 250MG/M2
     Dates: start: 20070730
  9. TAXOL [Suspect]
     Indication: NEOPLASM MALIGNANT
     Dosage: 40MG/M2 20MG/M2
     Dates: start: 20070611
  10. TAXOL [Suspect]
     Indication: NEOPLASM MALIGNANT
     Dosage: 40MG/M2 20MG/M2
     Dates: start: 20070618
  11. TAXOL [Suspect]
     Indication: NEOPLASM MALIGNANT
     Dosage: 40MG/M2 20MG/M2
     Dates: start: 20070625
  12. TAXOL [Suspect]
     Indication: NEOPLASM MALIGNANT
     Dosage: 40MG/M2 20MG/M2
     Dates: start: 20070702
  13. TAXOL [Suspect]
     Indication: NEOPLASM MALIGNANT
     Dosage: 40MG/M2 20MG/M2
     Dates: start: 20070709
  14. TAXOL [Suspect]
     Indication: NEOPLASM MALIGNANT
     Dosage: 40MG/M2 20MG/M2
     Dates: start: 20070716
  15. TAXOL [Suspect]
     Indication: NEOPLASM MALIGNANT
     Dosage: 40MG/M2 20MG/M2
     Dates: start: 20070723
  16. TAXOL [Suspect]
     Indication: NEOPLASM MALIGNANT
     Dosage: 40MG/M2 20MG/M2
     Dates: start: 20070730
  17. CARBOPLATIN [Suspect]
     Indication: NEOPLASM MALIGNANT
     Dosage: AUC 1 AUC 0.50
     Dates: start: 20070611
  18. CARBOPLATIN [Suspect]
     Indication: NEOPLASM MALIGNANT
     Dosage: AUC 1 AUC 0.50
     Dates: start: 20070618
  19. CARBOPLATIN [Suspect]
     Indication: NEOPLASM MALIGNANT
     Dosage: AUC 1 AUC 0.50
     Dates: start: 20070625
  20. CARBOPLATIN [Suspect]
     Indication: NEOPLASM MALIGNANT
     Dosage: AUC 1 AUC 0.50
     Dates: start: 20070702
  21. CARBOPLATIN [Suspect]
     Indication: NEOPLASM MALIGNANT
     Dosage: AUC 1 AUC 0.50
     Dates: start: 20070709
  22. CARBOPLATIN [Suspect]
     Indication: NEOPLASM MALIGNANT
     Dosage: AUC 1 AUC 0.50
     Dates: start: 20070716
  23. CARBOPLATIN [Suspect]
     Indication: NEOPLASM MALIGNANT
     Dosage: AUC 1 AUC 0.50
     Dates: start: 20070723
  24. CARBOPLATIN [Suspect]
     Indication: NEOPLASM MALIGNANT
     Dosage: AUC 1 AUC 0.50
     Dates: start: 20070730

REACTIONS (6)
  - FLUID INTAKE REDUCED [None]
  - LARYNGEAL ERYTHEMA [None]
  - LARYNGEAL OEDEMA [None]
  - LOCALISED OEDEMA [None]
  - NECK PAIN [None]
  - ORAL INTAKE REDUCED [None]
